FAERS Safety Report 8470202-6 (Version None)
Quarter: 2012Q2

REPORT INFORMATION
  Report Type: 
  Country: None (occurrence: None)
  Receive Date: 20120621
  Receipt Date: 20120621
  Transmission Date: 20120825
  Serious: Yes (Death)
  Sender: FDA-Public Use
  Company Number: None

PATIENT
  Age: 73 Year
  Sex: Female
  Weight: 73 kg

DRUGS (16)
  1. ERLOTINIB HYDROCHLORIDE [Suspect]
     Indication: LUNG ADENOCARCINOMA
     Dosage: 150 MG PO DAILY
     Route: 048
     Dates: start: 20120210, end: 20120601
  2. CLINDAMYCIN [Concomitant]
  3. XANAX [Concomitant]
  4. HYDROXYCHLOROQUINE SULFATE [Suspect]
     Indication: LUNG ADENOCARCINOMA
     Dosage: 1000 MG PO DAILY
     Route: 048
     Dates: start: 20120210, end: 20120201
  5. LIPITOR [Concomitant]
  6. METOPROLOL [Concomitant]
  7. CALCIUM PLUS [Concomitant]
  8. ENOXAPARIN [Concomitant]
  9. COLACE [Concomitant]
  10. LISINOPRIL [Concomitant]
  11. OXYCODONE HCL [Concomitant]
  12. PREVACID [Concomitant]
  13. SENNA-MINT WAF [Concomitant]
  14. LANTUS [Concomitant]
  15. CLOBETASOL PROPIONATE [Concomitant]
  16. COUMADIN [Concomitant]

REACTIONS (15)
  - BLOOD POTASSIUM INCREASED [None]
  - CHEST PAIN [None]
  - CARDIOGENIC SHOCK [None]
  - CARDIAC ARREST [None]
  - VENTRICULAR TACHYCARDIA [None]
  - HAEMATOCRIT DECREASED [None]
  - ATRIAL FIBRILLATION [None]
  - SUBDURAL HAEMATOMA [None]
  - CORONARY ARTERY DISEASE [None]
  - BLOOD GLUCOSE NORMAL [None]
  - POST PROCEDURAL COMPLICATION [None]
  - HAEMOGLOBIN DECREASED [None]
  - BLOOD ALKALINE PHOSPHATASE INCREASED [None]
  - ECHOCARDIOGRAM ABNORMAL [None]
  - CARDIOMYOPATHY [None]
